FAERS Safety Report 5089455-X (Version None)
Quarter: 2006Q3

REPORT INFORMATION
  Report Type: 
  Country: None (occurrence: None)
  Receive Date: 20060822
  Receipt Date: 20060809
  Transmission Date: 20061208
  Serious: Yes (Other)
  Sender: FDA-Public Use
  Company Number: 060809-0000760

PATIENT
  Age: 9 Year
  Sex: Male

DRUGS (1)
  1. ELSPAR [Suspect]
     Indication: ACUTE LYMPHOCYTIC LEUKAEMIA

REACTIONS (4)
  - COAGULATION TEST ABNORMAL [None]
  - HAEMORRHAGIC CEREBRAL INFARCTION [None]
  - HYPOCOAGULABLE STATE [None]
  - INTRACRANIAL VENOUS SINUS THROMBOSIS [None]
